FAERS Safety Report 7814376-6 (Version None)
Quarter: 2011Q4

REPORT INFORMATION
  Report Type: 
  Country: None (occurrence: None)
  Receive Date: 20111012
  Receipt Date: 20111005
  Transmission Date: 20120403
  Serious: Yes (Hospitalization, Other)
  Sender: FDA-Public Use
  Company Number: JPI-P-017464

PATIENT
  Age: 48 Year
  Sex: Male
  Weight: 89.8122 kg

DRUGS (8)
  1. TRAMADOL HCL [Concomitant]
  2. AMPHETAMINE, DEXTROAMPHETAMINE MIXED SALTS [Concomitant]
  3. DULOXETINE HYDROCHLORIDE [Concomitant]
  4. XYREM [Suspect]
     Indication: NARCOLEPSY
     Dosage: 4.5 GM (2.25 GM, 2 IN 1 D), ORAL 7GM (3.4 GM, 2 IN 1 D), ORAL 7.5 GM (3.75 GM, 2 IN 1 D), ORAL
     Route: 048
     Dates: start: 20110216
  5. XYREM [Suspect]
     Indication: NARCOLEPSY
     Dosage: 4.5 GM (2.25 GM, 2 IN 1 D), ORAL 7GM (3.4 GM, 2 IN 1 D), ORAL 7.5 GM (3.75 GM, 2 IN 1 D), ORAL
     Route: 048
     Dates: start: 20060215
  6. ESOMEPRAZOLE MAGNESIUM [Concomitant]
  7. DICLOFENAC SODIUM GEL [Concomitant]
  8. ALPRAZOLAM [Concomitant]

REACTIONS (5)
  - CHEST DISCOMFORT [None]
  - HEART RATE INCREASED [None]
  - BLOOD TRIGLYCERIDES INCREASED [None]
  - CHEST PAIN [None]
  - HYPERTENSION [None]
